FAERS Safety Report 13731467 (Version 2)
Quarter: 2017Q3

REPORT INFORMATION
  Report Type: Spontaneous
  Country: US (occurrence: US)
  Receive Date: 20170707
  Receipt Date: 20170718
  Transmission Date: 20171127
  Serious: Yes (Other)
  Sender: FDA-Public Use
  Company Number: US-PFIZER INC-2017294356

PATIENT
  Age: 60 Year
  Sex: Female

DRUGS (1)
  1. XELJANZ [Suspect]
     Active Substance: TOFACITINIB CITRATE
     Dosage: 5 MG, UNK

REACTIONS (9)
  - Bursa disorder [Unknown]
  - Sleep apnoea syndrome [Unknown]
  - Blood pressure diastolic decreased [Unknown]
  - Blood creatinine increased [Not Recovered/Not Resolved]
  - Alopecia [Unknown]
  - Basedow^s disease [Unknown]
  - Foot deformity [Unknown]
  - Pain in extremity [Not Recovered/Not Resolved]
  - Arthralgia [Unknown]

NARRATIVE: CASE EVENT DATE: 2015
